FAERS Safety Report 9921288 (Version 1)
Quarter: 2014Q1

REPORT INFORMATION
  Report Type: Spontaneous
  Country: US (occurrence: US)
  Receive Date: 20140225
  Receipt Date: 20140225
  Transmission Date: 20141002
  Serious: Yes (Hospitalization)
  Sender: FDA-Public Use
  Company Number: US-SUN PHARMACEUTICAL INDUSTRIES LTD-2014SUN00352

PATIENT
  Age: 39 Year
  Sex: Male

DRUGS (2)
  1. GEMCITABINE [Suspect]
     Indication: METASTATIC NEOPLASM
     Route: 065
  2. GEMCITABINE [Suspect]
     Indication: SARCOMA

REACTIONS (4)
  - Dermatitis [Recovered/Resolved]
  - Erythema [None]
  - Oedema [None]
  - Tenderness [None]
